FAERS Safety Report 7428920-4 (Version None)
Quarter: 2011Q2

REPORT INFORMATION
  Report Type: 
  Country: None (occurrence: None)
  Receive Date: 20110413
  Receipt Date: 20110331
  Transmission Date: 20111010
  Serious: Yes (Hospitalization, Other)
  Sender: FDA-Public Use
  Company Number: 2011-0885

PATIENT
  Age: 56 Year
  Sex: Female
  Weight: 60.5 kg

DRUGS (7)
  1. LOXONIN TAPE (LOXOPROFEN SODIUM) [Concomitant]
  2. MUCOSTA (REBAMIPIDE) [Concomitant]
  3. LANREOTIDE AUTOGEL (LANREOTIDE) (LANREOTIDE ACETATE) [Suspect]
     Indication: ACROMEGALY
     Dosage: 120 MG (120 MG,1 IN 4 WK),SUBCUTANEOUS
     Route: 058
     Dates: start: 20100524, end: 20110107
  4. MAGLAX (MAGNESIUM OXIDE) (MAGNESIUM OXIDE) [Concomitant]
  5. LOXONIN (LOXOPROFEN SODIUM) [Concomitant]
  6. GASCON (DIMETICONE) (DIMETICONE) [Concomitant]
  7. BLOPRESS (CANDESARTAN CILEXETIL) (CANDESARTAN CILEXETIL) [Concomitant]

REACTIONS (2)
  - PANCREATIC CARCINOMA [None]
  - GALLBLADDER ENLARGEMENT [None]
